FAERS Safety Report 16932115 (Version 2)
Quarter: 2019Q4

REPORT INFORMATION
  Report Type: Spontaneous
  Country: US (occurrence: US)
  Receive Date: 20191017
  Receipt Date: 20191111
  Transmission Date: 20200122
  Serious: Yes (Hospitalization, Other)
  Sender: FDA-Public Use
  Company Number: US-PFIZER INC-2019449533

PATIENT

DRUGS (2)
  1. XANAX [Suspect]
     Active Substance: ALPRAZOLAM
     Indication: ANXIETY
     Dosage: 2 MG, 4X/DAY
  2. XANAX [Suspect]
     Active Substance: ALPRAZOLAM
     Indication: SEIZURE

REACTIONS (1)
  - Suicidal ideation [Unknown]
